FAERS Safety Report 8337254-5 (Version None)
Quarter: 2012Q2

REPORT INFORMATION
  Report Type: 
  Country: None (occurrence: None)
  Receive Date: 20120502
  Receipt Date: 20120417
  Transmission Date: 20120825
  Serious: Yes (Other)
  Sender: FDA-Public Use
  Company Number: DSA_56212_2012

PATIENT
  Age: 60 Year
  Sex: Female

DRUGS (5)
  1. ESTRACE [Concomitant]
  2. THYROID TAB [Concomitant]
  3. HYDROCORTISONE [Concomitant]
  4. PROGESTERONE [Concomitant]
  5. ATIVAN [Suspect]
     Indication: ANXIETY
     Dosage: (0.5 MG QID ORAL)
     Route: 048
     Dates: start: 20020101

REACTIONS (9)
  - MUSCLE SPASMS [None]
  - FOOT DEFORMITY [None]
  - ALOPECIA [None]
  - TREMOR [None]
  - GAIT DISTURBANCE [None]
  - LOSS OF CONSCIOUSNESS [None]
  - DEPRESSION [None]
  - SUICIDAL IDEATION [None]
  - FALL [None]
